FAERS Safety Report 6601229-4 (Version None)
Quarter: 2010Q1

REPORT INFORMATION
  Report Type: 
  Country: None (occurrence: None)
  Receive Date: 20100224
  Receipt Date: 20100224
  Transmission Date: 20100710
  Serious: Yes (Other)
  Sender: FDA-Public Use
  Company Number: None

PATIENT
  Age: 67 Year
  Sex: Female
  Weight: 65.7716 kg

DRUGS (1)
  1. CLINDAMYCIN [Suspect]
     Indication: SINUSITIS
     Dosage: 300 MG
     Dates: start: 20090929, end: 20091013

REACTIONS (3)
  - COLITIS [None]
  - HAEMATOCHEZIA [None]
  - MUCOUS STOOLS [None]
